FAERS Safety Report 18957700 (Version 1)
Quarter: 2021Q1

REPORT INFORMATION
  Report Type: Spontaneous
  Country: DE (occurrence: DE)
  Receive Date: 20210302
  Receipt Date: 20210302
  Transmission Date: 20210420
  Serious: Yes (Other)
  Sender: FDA-Public Use
  Company Number: DE-ORGANON-O2102DEU007826

PATIENT
  Age: 22 Year
  Sex: Male
  Weight: 80 kg

DRUGS (11)
  1. FERRO?SANOL DUODENAL [Suspect]
     Active Substance: FERROUS GLYCINE SULFATE
     Indication: PRODUCT USED FOR UNKNOWN INDICATION
     Dosage: DOSE: 1000 MG, ONCE (DAILY DOSE: 1000 MG MILLIGRAM(S) EVERY)
     Dates: start: 20161204, end: 20161204
  2. IBUPROFEN. [Suspect]
     Active Substance: IBUPROFEN
     Indication: PRODUCT USED FOR UNKNOWN INDICATION
     Dosage: DOSE: 30000 MILLIGRAM (MG), ONCE (DAILY DOSE: 30000 MG MILLIGRAM(S) EVERY)
     Dates: start: 20161204, end: 20161204
  3. FINASTERIDE. [Suspect]
     Active Substance: FINASTERIDE
     Indication: PRODUCT USED FOR UNKNOWN INDICATION
     Dosage: 150 MILLIGRAM, ONCE (DAILY DOSE: 150 MG MILLIGRAM(S) EVERY)
     Dates: start: 20161204, end: 20161204
  4. ALKOHOL [Suspect]
     Active Substance: ALCOHOL
     Indication: PRODUCT USED FOR UNKNOWN INDICATION
     Dosage: UNK
     Dates: start: 20161204, end: 20161204
  5. NAPROXEN. [Suspect]
     Active Substance: NAPROXEN
     Indication: PRODUCT USED FOR UNKNOWN INDICATION
     Dosage: DOSE: 2000 MILLIGRAM, ONCE (DAILY DOSE: 2000 MG MILLIGRAM(S) EVERY)
     Dates: start: 20161204, end: 20161204
  6. PARACETAMOL [Suspect]
     Active Substance: ACETAMINOPHEN
     Indication: PRODUCT USED FOR UNKNOWN INDICATION
     Dosage: DOSE: 3000 MILLIGRAM, ONCE (DAILY DOSE: 3000 MG MILLIGRAM(S) EVERY)
     Dates: start: 20161204, end: 20161204
  7. PANTOPRAZOLE SODIUM SESQUIHYDRATE [Suspect]
     Active Substance: PANTOPRAZOLE SODIUM
     Indication: PRODUCT USED FOR UNKNOWN INDICATION
     Dosage: 400 MILLIGRAM, ONCE (DAILY DOSE: 400 MG MILLIGRAM(S) EVERY)
     Dates: start: 20161204, end: 20161204
  8. ACETYLSALICYLSAEURE [Suspect]
     Active Substance: ASPIRIN
     Indication: PRODUCT USED FOR UNKNOWN INDICATION
     Dosage: 900 MILLIGRAM, ONCE (DAILY DOSE: 900 MG MILLIGRAM(S) EVERY)
     Dates: start: 20161204, end: 20161204
  9. VITAMIN D3 [Suspect]
     Active Substance: CHOLECALCIFEROL
     Indication: PRODUCT USED FOR UNKNOWN INDICATION
     Dosage: DOSE AND FREQUENCY: NOT REPORTED; 30 TABLETS
     Dates: start: 20161204, end: 20161204
  10. RUTINOSCORBIN [Suspect]
     Active Substance: ASCORBIC ACID\RUTIN
     Indication: PRODUCT USED FOR UNKNOWN INDICATION
     Dosage: UNK
     Dates: start: 20161204, end: 20161204
  11. SPIRONOLACTON [Suspect]
     Active Substance: SPIRONOLACTONE
     Indication: PRODUCT USED FOR UNKNOWN INDICATION
     Dosage: 500 MILLIGRAM, ONCE (DAILY DOSE: 500 MG MILLIGRAM(S) EVERY)
     Dates: start: 20161204, end: 20161204

REACTIONS (2)
  - Suicide attempt [Unknown]
  - Intentional overdose [Unknown]

NARRATIVE: CASE EVENT DATE: 20161204
